FAERS Safety Report 9361492 (Version 3)
Quarter: 2014Q1

REPORT INFORMATION
  Report Type: Spontaneous
  Country: US (occurrence: US)
  Receive Date: 20130621
  Receipt Date: 20140310
  Transmission Date: 20141002
  Serious: Yes (Other)
  Sender: FDA-Public Use
  Company Number: US-JNJFOC-20130612424

PATIENT
  Sex: 0

DRUGS (11)
  1. DOXORUBICIN [Suspect]
     Indication: HER-2 POSITIVE BREAST CANCER
     Route: 042
  2. DOXORUBICIN [Suspect]
     Indication: HER-2 POSITIVE BREAST CANCER
     Route: 042
  3. DOXORUBICIN [Suspect]
     Indication: HER-2 POSITIVE BREAST CANCER
     Route: 042
  4. DOXORUBICIN [Suspect]
     Indication: HER-2 POSITIVE BREAST CANCER
     Route: 042
  5. CYCLOPHOSPHAMIDE [Suspect]
     Indication: HER-2 POSITIVE BREAST CANCER
     Route: 042
  6. CYCLOPHOSPHAMIDE [Suspect]
     Indication: HER-2 POSITIVE BREAST CANCER
     Route: 042
  7. PEGFILGRASTIM [Suspect]
     Indication: HER-2 POSITIVE BREAST CANCER
     Route: 065
  8. PACLITAXEL [Suspect]
     Indication: HER-2 POSITIVE BREAST CANCER
     Route: 042
  9. PACLITAXEL [Suspect]
     Indication: HER-2 POSITIVE BREAST CANCER
     Route: 042
  10. TRASTUZUMAB [Suspect]
     Indication: HER-2 POSITIVE BREAST CANCER
     Route: 065
  11. LAPATINIB [Suspect]
     Indication: HER-2 POSITIVE BREAST CANCER
     Route: 048

REACTIONS (1)
  - Aspartate aminotransferase [Unknown]
